FAERS Safety Report 10535095 (Version 1)
Quarter: 2014Q4

REPORT INFORMATION
  Report Type: Spontaneous
  Country: US (occurrence: US)
  Receive Date: 20141022
  Receipt Date: 20141022
  Transmission Date: 20150529
  Serious: No
  Sender: FDA-Public Use
  Company Number: US-ASTRAZENECA-2014SE26560

PATIENT
  Age: 81 Year
  Sex: Female
  Weight: 117 kg

DRUGS (12)
  1. VITAMIN D [Concomitant]
     Active Substance: CHOLECALCIFEROL
     Dosage: 50000 Q2WK
  2. LUMIGAN [Concomitant]
     Active Substance: BIMATOPROST
     Indication: GLAUCOMA
     Dosage: 1 DROP DAILY
  3. DORZOLAMIDE HCI [Concomitant]
     Indication: GLAUCOMA
     Dosage: 1 DROP BID
  4. TRIAMTERENE HCTZ [Concomitant]
     Active Substance: HYDROCHLOROTHIAZIDE\TRIAMTERENE
     Dosage: 37.5/25MG DAILY
  5. HUMALOG [Concomitant]
     Active Substance: INSULIN LISPRO
     Indication: DIABETES MELLITUS
  6. QUNIPRIL HCL [Concomitant]
     Indication: BLOOD PRESSURE ABNORMAL
  7. LEVOTHYROXINE [Concomitant]
     Active Substance: LEVOTHYROXINE
     Dosage: 25MCG DAILY
  8. FUROSEMIDE. [Concomitant]
     Active Substance: FUROSEMIDE
  9. AMYLODIPINE [Concomitant]
  10. CRESTOR [Suspect]
     Active Substance: ROSUVASTATIN CALCIUM
     Indication: BLOOD CHOLESTEROL ABNORMAL
     Route: 048
     Dates: start: 2008
  11. ASA [Concomitant]
     Active Substance: ASPIRIN
  12. LANTACE [Concomitant]
     Indication: DIABETES MELLITUS

REACTIONS (4)
  - Abdominal discomfort [Recovered/Resolved]
  - Dysgeusia [Unknown]
  - Glaucoma [Not Recovered/Not Resolved]
  - Drug dose omission [Recovered/Resolved]

NARRATIVE: CASE EVENT DATE: 2010
